FAERS Safety Report 10219561 (Version 1)
Quarter: 2014Q2

REPORT INFORMATION
  Report Type: Spontaneous
  Country: CA (occurrence: CA)
  Receive Date: 20140605
  Receipt Date: 20140605
  Transmission Date: 20141212
  Serious: Yes (Other)
  Sender: FDA-Public Use
  Company Number: CA-GLAXOSMITHKLINE-A1075780A

PATIENT
  Age: 48 Year
  Sex: Female
  Weight: 91.4 kg

DRUGS (1)
  1. FLOVENT [Suspect]
     Indication: PRODUCT USED FOR UNKNOWN INDICATION
     Dosage: 1U TWICE PER DAY
     Route: 055

REACTIONS (3)
  - Adrenal insufficiency [Recovered/Resolved]
  - Dehydroepiandrosterone decreased [Recovered/Resolved]
  - Fatigue [Recovered/Resolved]
